FAERS Safety Report 22221127 (Version 1)
Quarter: 2023Q2

REPORT INFORMATION
  Report Type: Spontaneous
  Country: ES (occurrence: ES)
  Receive Date: 20230418
  Receipt Date: 20230418
  Transmission Date: 20230721
  Serious: Yes (Life-Threatening, Hospitalization, Other)
  Sender: FDA-Public Use
  Company Number: None

PATIENT
  Age: 83 Year
  Sex: Male
  Weight: 73.3 kg

DRUGS (12)
  1. DOCETAXEL [Suspect]
     Active Substance: DOCETAXEL
     Indication: Prostate cancer metastatic
     Dosage: CADA 3 SEMANAS
     Route: 042
     Dates: start: 20230223
  2. FERROUS GLYCINE SULFATE [Concomitant]
     Active Substance: FERROUS GLYCINE SULFATE
     Indication: Chronic kidney disease
     Dosage: 100 MG 1-0-0, CAPSULAS GASTRORRESISTENTES
     Route: 048
     Dates: start: 20211119
  3. ENTRESTO [Concomitant]
     Active Substance: SACUBITRIL\VALSARTAN
     Indication: Cardiac failure
     Dosage: 24/26 MG 0.5-0-0.5, 24 MG/26 MG COMPRIMIDOS RECUBIERTOS CON PELICULA, 28 COMPRIMIDOS
     Route: 048
     Dates: start: 20220908
  4. ROCALTROL [Concomitant]
     Active Substance: CALCITRIOL
     Indication: Chronic kidney disease
     Dosage: 0.25 MCG 0-1-0
     Route: 048
     Dates: start: 20211119
  5. EZETIMIBE\ROSUVASTATIN ZINC [Concomitant]
     Active Substance: EZETIMIBE\ROSUVASTATIN ZINC
     Indication: Myocardial ischaemia
     Dosage: 0-0-1, 20 MG/10 MG CAPSULAS DURAS , 30 CAPSULES
     Route: 048
     Dates: start: 20211119
  6. PREDNISONE [Concomitant]
     Active Substance: PREDNISONE
     Indication: Prostate cancer metastatic
     Dosage: 10 MG CADA 24 HORAS
     Route: 048
     Dates: start: 20230223
  7. BISOPROLOL [Concomitant]
     Active Substance: BISOPROLOL
     Indication: Cardiac failure
     Dosage: 2.5MG MEDIO CADA 24 HORAS
     Route: 048
     Dates: start: 20171016
  8. DECAPEPTYL SEMESTRAL [Concomitant]
     Indication: Prostate cancer metastatic
     Dosage: 1 CADA 6 MESES,  22,5 MG POLVO Y DISOLVENTE PARA SUSPENSION DE LIBERACION PROLONGADA INYECTABLE, 1 V
     Route: 030
     Dates: start: 20211119
  9. ELIQUIS [Concomitant]
     Active Substance: APIXABAN
     Indication: Intracardiac thrombus
     Dosage: 2.5 1-0-1
     Route: 048
     Dates: start: 20220412
  10. SPIRONOLACTONE [Concomitant]
     Active Substance: SPIRONOLACTONE
     Indication: Cardiac failure
     Dosage: 25 MG 0-1-0
     Route: 048
     Dates: start: 20220421
  11. FUROSEMIDE [Concomitant]
     Active Substance: FUROSEMIDE
     Indication: Cardiac failure
     Dosage: 40 MG CADA 24 HORAS
     Route: 048
     Dates: start: 20211119
  12. PANTOPRAZOLE [Concomitant]
     Active Substance: PANTOPRAZOLE
     Indication: Gastrooesophageal reflux disease
     Dosage: 20MG CADA 24 HORAS
     Route: 048
     Dates: start: 20191018

REACTIONS (2)
  - Agranulocytosis [Recovered/Resolved]
  - Cardiac failure acute [Recovering/Resolving]

NARRATIVE: CASE EVENT DATE: 20230319
